FAERS Safety Report 10240571 (Version 1)
Quarter: 2014Q2

REPORT INFORMATION
  Report Type: Spontaneous
  Country: US (occurrence: None)
  Receive Date: 20140613
  Receipt Date: 20140613
  Transmission Date: 20141212
  Serious: Yes (Disabling)
  Sender: FDA-Public Use
  Company Number: None

PATIENT
  Age: 54 Year
  Sex: Female
  Weight: 81.19 kg

DRUGS (8)
  1. RISPERDAL CONSTA INJECTION [Suspect]
     Indication: MENTAL DISORDER
     Dosage: 1 INJECTION BI WEEKLY INJECTION
     Dates: start: 20140418
  2. METFORMIN [Concomitant]
  3. METOPROLOL [Concomitant]
  4. LISINIPRIL 5MG [Concomitant]
  5. LITHIUM [Concomitant]
  6. DEPAKOTE [Concomitant]
  7. SIMVASTATIN [Concomitant]
  8. LEVOTHYROXINE [Concomitant]

REACTIONS (9)
  - Nausea [None]
  - Syncope [None]
  - Angina pectoris [None]
  - Palpitations [None]
  - Headache [None]
  - Paralysis [None]
  - Burning sensation [None]
  - Tardive dyskinesia [None]
  - Dysphonia [None]
